FAERS Safety Report 10599414 (Version 2)
Quarter: 2014Q4

REPORT INFORMATION
  Report Type: Report from Study
  Country: JP (occurrence: JP)
  Receive Date: 20141121
  Receipt Date: 20141121
  Transmission Date: 20150529
  Serious: Yes (Hospitalization)
  Sender: FDA-Public Use
  Company Number: JP-INCYTE CORPORATION-2014IN002582

PATIENT
  Age: 76 Year
  Sex: Male
  Weight: 62 kg

DRUGS (10)
  1. INC424 [Suspect]
     Active Substance: RUXOLITINIB
     Dosage: 15 MG, UNK (DAILY) 1 TABLET IN THE MORNING AND 2 TABLETS IN THE EVENING
     Route: 048
     Dates: start: 20140907, end: 20140908
  2. INC424 [Suspect]
     Active Substance: RUXOLITINIB
     Dosage: 30 MG, UNK; ORAL
     Route: 048
     Dates: start: 20140910, end: 20140921
  3. MUCOSTA [Concomitant]
     Active Substance: REBAMIPIDE
     Indication: GASTROINTESTINAL MUCOSAL DISORDER
     Dosage: UNK
     Route: 048
     Dates: start: 20110121
  4. INC424 [Suspect]
     Active Substance: RUXOLITINIB
     Indication: MYELOFIBROSIS
     Dosage: 20 MG, BID
     Route: 048
     Dates: start: 20140729, end: 20140825
  5. INC424 [Suspect]
     Active Substance: RUXOLITINIB
     Dosage: 5 MG, UNK (DAILY) AFTER SUPPER
     Route: 048
     Dates: start: 20140904, end: 20140907
  6. INC424 [Suspect]
     Active Substance: RUXOLITINIB
     Dosage: 20 MG, UNK; ORAL
     Route: 048
     Dates: start: 20140921
  7. ZYLORIC [Concomitant]
     Active Substance: ALLOPURINOL
     Indication: GOUT
     Dosage: UNK
     Route: 048
     Dates: start: 20130121, end: 20140829
  8. CALONAL [Concomitant]
     Active Substance: ACETAMINOPHEN
     Indication: PAIN
     Dosage: 1200 UNK, UNK
     Route: 048
     Dates: start: 20140901
  9. INC424 [Suspect]
     Active Substance: RUXOLITINIB
     Dosage: 20 MG, UNK (DAILY) 2 TABLETS EACH IN THE MORNING AND EVENING
     Route: 048
     Dates: start: 20140908, end: 20140909
  10. TAKA-DIASTASE [Concomitant]
     Active Substance: DIASTASE
     Indication: GASTROINTESTINAL MUCOSAL DISORDER
     Dosage: UNK G, UNK
     Route: 048
     Dates: start: 20110121

REACTIONS (2)
  - Gout [Recovering/Resolving]
  - Drug withdrawal syndrome [Recovering/Resolving]

NARRATIVE: CASE EVENT DATE: 20140903
